FAERS Safety Report 21371575 (Version 1)
Quarter: 2022Q3

REPORT INFORMATION
  Report Type: Report from Study
  Country: DE (occurrence: DE)
  Receive Date: 20220923
  Receipt Date: 20220923
  Transmission Date: 20221027
  Serious: Yes (Hospitalization)
  Sender: FDA-Public Use
  Company Number: DE-EMA-DD-20220907-116003-120536

PATIENT
  Sex: Male

DRUGS (36)
  1. METHOTREXATE [Suspect]
     Active Substance: METHOTREXATE
     Indication: Rheumatoid arthritis
     Dosage: 15 MG, UNIT DOSE : 15 MG, THERAPY END DATE : ASKU
     Route: 065
     Dates: start: 20160411
  2. METHOTREXATE [Suspect]
     Active Substance: METHOTREXATE
     Dosage: 20 MG, UNIT DOSE : 20 MG, THERAPY END DATE : ASKU
     Route: 065
     Dates: start: 20090910
  3. METHOTREXATE [Suspect]
     Active Substance: METHOTREXATE
     Dosage: 15 MG, UNIT DOSE : 15 MG, THERAPY END DATE : ASKU
     Route: 065
     Dates: start: 20151007
  4. METHOTREXATE [Suspect]
     Active Substance: METHOTREXATE
     Dosage: 15 MG, UNIT DOSE : 15 MG, THERAPY END DATE : ASKU
     Route: 065
     Dates: start: 20140901
  5. METHOTREXATE [Suspect]
     Active Substance: METHOTREXATE
     Dosage: 15 MG, UNIT DOSE : 15 MG, THERAPY END DATE : ASKU
     Route: 065
     Dates: start: 20170823
  6. METHOTREXATE [Suspect]
     Active Substance: METHOTREXATE
     Dosage: 15 MG, UNIT DOSE : 15 MG, THERAPY END DATE : ASKU
     Route: 065
     Dates: start: 20150112
  7. METHOTREXATE [Suspect]
     Active Substance: METHOTREXATE
     Dosage: 20 MG, UNIT DOSE : 20 MG, THERAPY END DATE : ASKU
     Route: 065
     Dates: start: 20090319
  8. METHOTREXATE [Suspect]
     Active Substance: METHOTREXATE
     Dosage: 20 MG, UNIT DOSE : 20 MG, THERAPY END DATE : ASKU
     Route: 065
     Dates: start: 20120229
  9. METHOTREXATE [Suspect]
     Active Substance: METHOTREXATE
     Dosage: 20 MG, UNIT DOSE : 20 MG, THERAPY END DATE : ASKU
     Route: 065
     Dates: start: 20100302
  10. METHOTREXATE [Suspect]
     Active Substance: METHOTREXATE
     Dosage: UNK, THERAPY END DATE : ASKU
     Route: 065
     Dates: start: 20160922
  11. METHOTREXATE [Suspect]
     Active Substance: METHOTREXATE
     Dosage: 20 MG, UNIT DOSE : 20 MG, THERAPY END DATE : ASKU
     Route: 065
     Dates: start: 20110930
  12. METHOTREXATE [Suspect]
     Active Substance: METHOTREXATE
     Dosage: 15 MG, UNIT DOSE : 15 MG, THERAPY END DATE : ASKU
     Route: 065
     Dates: start: 20170116
  13. METHOTREXATE [Suspect]
     Active Substance: METHOTREXATE
     Dosage: 20 MG, UNIT DOSE : 20 MG, THERAPY END DATE : ASKU
     Route: 065
     Dates: start: 20130103
  14. METHOTREXATE [Suspect]
     Active Substance: METHOTREXATE
     Dosage: 15 MG, UNIT DOSE : 15 MG, THERAPY END DATE : ASKU
     Route: 065
     Dates: start: 20130903
  15. METHOTREXATE [Suspect]
     Active Substance: METHOTREXATE
     Dosage: 20 MG, UNIT DOSE : 20 MG, THERAPY END DATE : ASKU
     Route: 065
     Dates: start: 20090623
  16. METHOTREXATE [Suspect]
     Active Substance: METHOTREXATE
     Dosage: 15 MG, UNIT DOSE : 15 MG, THERAPY END DATE : ASKU
     Route: 065
     Dates: start: 20130325
  17. METHOTREXATE [Suspect]
     Active Substance: METHOTREXATE
     Dosage: 20 MG, UNIT DOSE : 20 MG, THERAPY END DATE : ASKU
     Route: 065
     Dates: start: 20110310
  18. METHOTREXATE [Suspect]
     Active Substance: METHOTREXATE
     Dosage: 20 MG, UNIT DOSE : 20 MG, THERAPY END DATE : ASKU
     Route: 065
     Dates: start: 20100923
  19. METHOTREXATE [Suspect]
     Active Substance: METHOTREXATE
     Dosage: 15 MG, UNIT DOSE : 15 MG, THERAPY END DATE : ASKU
     Route: 065
     Dates: start: 20140402
  20. HYDROXYCHLOROQUINE SULFATE [Suspect]
     Active Substance: HYDROXYCHLOROQUINE SULFATE
     Indication: Rheumatoid arthritis
     Dosage: 400 MG, UNIT DOSE : 400 MG, THERAPY END DATE : ASKU
     Route: 065
     Dates: start: 20100923
  21. HYDROXYCHLOROQUINE SULFATE [Suspect]
     Active Substance: HYDROXYCHLOROQUINE SULFATE
     Dosage: 200 MG, UNIT DOSE : 20 MG, THERAPY END DATE : ASKU
     Route: 065
     Dates: start: 20090910
  22. HYDROXYCHLOROQUINE SULFATE [Suspect]
     Active Substance: HYDROXYCHLOROQUINE SULFATE
     Dosage: 400 MG, UNIT DOSE : 400 MG, THERAPY END DATE : ASKU
     Route: 065
     Dates: start: 20180326
  23. HYDROXYCHLOROQUINE SULFATE [Suspect]
     Active Substance: HYDROXYCHLOROQUINE SULFATE
     Dosage: 200 MG, UNIT DOSE : 200 MG, THERAPY END DATE : ASKU
     Route: 065
     Dates: start: 20090623
  24. HYDROXYCHLOROQUINE SULFATE [Suspect]
     Active Substance: HYDROXYCHLOROQUINE SULFATE
     Dosage: 200 MG, UNIT DOSE : 200 MG, THERAPY END DATE : ASKU
     Route: 065
     Dates: start: 20100302
  25. HYDROXYCHLOROQUINE SULFATE [Suspect]
     Active Substance: HYDROXYCHLOROQUINE SULFATE
     Dosage: 400 MG, UNIT DOSE : 400 MG, THERAPY END DATE : ASKU
     Route: 065
     Dates: start: 20170823
  26. HYDROXYCHLOROQUINE SULFATE [Suspect]
     Active Substance: HYDROXYCHLOROQUINE SULFATE
     Dosage: 400 MG, UNIT DOSE : 400 MG, THERAPY END DATE : ASKU
     Route: 065
     Dates: start: 20181211
  27. HYDROXYCHLOROQUINE SULFATE [Suspect]
     Active Substance: HYDROXYCHLOROQUINE SULFATE
     Dosage: 400 MG, UNIT DOSE : 400 MG, THERAPY END DATE : ASKU
     Route: 065
     Dates: start: 20180704
  28. HYDROXYCHLOROQUINE SULFATE [Suspect]
     Active Substance: HYDROXYCHLOROQUINE SULFATE
     Dosage: 200 MG, UNIT DOSE : 200 MG, THERAPY END DATE : ASKU
     Route: 065
     Dates: start: 20090319
  29. ORENCIA [Suspect]
     Active Substance: ABATACEPT
     Indication: Rheumatoid arthritis
     Dosage: 750 MG, UNIT DOSE :   750 MG, DURATION : 4 MONTHS
     Route: 065
     Dates: start: 200911, end: 201003
  30. TOCILIZUMAB [Suspect]
     Active Substance: TOCILIZUMAB
     Indication: Rheumatoid arthritis
     Dosage: 634 MG, UNIT DOSE :   634 MG , THERAPY END DATE : ASKU
     Route: 065
     Dates: start: 201004
  31. TOCILIZUMAB [Suspect]
     Active Substance: TOCILIZUMAB
     Dosage: UNK, THERAPY START DATE : ASKU , THERAPY END DATE : ASKU
     Route: 065
  32. TOCILIZUMAB [Suspect]
     Active Substance: TOCILIZUMAB
     Dosage: 620 MG , UNIT DOSE :   620 MG, DURATION : 1 MONTHS
     Route: 065
     Dates: start: 201108, end: 201109
  33. TOCILIZUMAB [Suspect]
     Active Substance: TOCILIZUMAB
     Dosage: 620 MG, UNIT DOSE :   620 MG, THERAPY END DATE : ASKU
     Route: 065
     Dates: start: 20110930
  34. TOCILIZUMAB [Suspect]
     Active Substance: TOCILIZUMAB
     Dosage: 574 MG, , THERAPY START DATE : ASKU
     Route: 065
     Dates: end: 201207
  35. TOCILIZUMAB [Suspect]
     Active Substance: TOCILIZUMAB
     Dosage: 620 MG, UNIT DOSE :  620 MG, DURATION : 3 MONTHS
     Route: 065
     Dates: start: 20110310, end: 201106
  36. TOCILIZUMAB [Suspect]
     Active Substance: TOCILIZUMAB
     Dosage: 574 MG, DURATION :8 MONTHS, UNIT DOSE :   574 MG
     Route: 065
     Dates: start: 201111, end: 201207

REACTIONS (3)
  - Fall [Not Recovered/Not Resolved]
  - Whipple^s disease [Unknown]
  - Femur fracture [Not Recovered/Not Resolved]

NARRATIVE: CASE EVENT DATE: 20170115
